FAERS Safety Report 18939464 (Version 1)
Quarter: 2021Q1

REPORT INFORMATION
  Report Type: Spontaneous
  Country: US (occurrence: US)
  Receive Date: 20210224
  Receipt Date: 20210224
  Transmission Date: 20210420
  Serious: Yes (Disabling)
  Sender: FDA-Public Use
  Company Number: None

PATIENT
  Age: 38 Year
  Sex: Female

DRUGS (1)
  1. CHLORHEXIDINE GLUCONATE MOUTHWASH [Suspect]
     Active Substance: CHLORHEXIDINE GLUCONATE
     Indication: PRODUCT USED FOR UNKNOWN INDICATION
     Dates: start: 20191205, end: 20191220

REACTIONS (5)
  - Rash [None]
  - Recalled product [None]
  - Nasopharyngitis [None]
  - Respiration abnormal [None]
  - Pulmonary congestion [None]

NARRATIVE: CASE EVENT DATE: 20191220
